FAERS Safety Report 8404701-X (Version None)
Quarter: 2012Q2

REPORT INFORMATION
  Report Type: 
  Country: None (occurrence: None)
  Receive Date: 20120601
  Receipt Date: 20120523
  Transmission Date: 20120825
  Serious: Yes (Hospitalization)
  Sender: FDA-Public Use
  Company Number: US-ASTRAZENECA-2012SE32577

PATIENT
  Age: 76 Year
  Sex: Male
  Weight: 85.7 kg

DRUGS (13)
  1. BUMETANIDE [Concomitant]
  2. PAXIL [Concomitant]
  3. CRESTOR [Suspect]
     Route: 048
  4. TIAZAC [Concomitant]
  5. ACETAMINOPHEN [Concomitant]
  6. GLIMEPIRIDE [Concomitant]
  7. ASPIRIN [Concomitant]
     Dosage: LOW DOSE
  8. SYMBICORT [Suspect]
     Indication: EMPHYSEMA
     Dosage: 160/4.5 MCG, 2 PUFFS TWICE A DAY
     Route: 055
  9. METOPROLOL TARTRATE [Suspect]
     Route: 065
  10. WARFARIN SODIUM [Concomitant]
  11. NAMENDA [Concomitant]
  12. LORTAB [Concomitant]
  13. SYMBICORT [Suspect]
     Indication: CHRONIC OBSTRUCTIVE PULMONARY DISEASE
     Dosage: 160/4.5 MCG, 2 PUFFS TWICE A DAY
     Route: 055

REACTIONS (4)
  - CIRCUMSTANCE OR INFORMATION CAPABLE OF LEADING TO MEDICATION ERROR [None]
  - EMPHYSEMA [None]
  - INTENTIONAL DRUG MISUSE [None]
  - CHRONIC OBSTRUCTIVE PULMONARY DISEASE [None]
